FAERS Safety Report 4773267-8 (Version None)
Quarter: 2005Q3

REPORT INFORMATION
  Report Type: 
  Country: None (occurrence: None)
  Receive Date: 20050916
  Receipt Date: 20050908
  Transmission Date: 20060218
  Serious: Yes (Other)
  Sender: FDA-Public Use
  Company Number: 2005125268

PATIENT
  Age: 80 Year
  Sex: Female

DRUGS (1)
  1. MACUGEN [Suspect]
     Indication: ILL-DEFINED DISORDER
     Dosage: (1 IN 6 WK), INTRAVITROUS
     Dates: start: 20050314

REACTIONS (2)
  - CHOROIDAL HAEMORRHAGE [None]
  - VISUAL ACUITY REDUCED [None]
